FAERS Safety Report 8177208-5 (Version None)
Quarter: 2012Q1

REPORT INFORMATION
  Report Type: 
  Country: None (occurrence: None)
  Receive Date: 20120301
  Receipt Date: 20120222
  Transmission Date: 20120608
  Serious: Yes (Death, Other)
  Sender: FDA-Public Use
  Company Number: GB-JNJFOC-20120214660

PATIENT
  Age: 89 Year

DRUGS (7)
  1. AMLODIPINE [Concomitant]
     Route: 065
  2. ALBUTEROL SULFATE AUTOHALER [Concomitant]
     Route: 065
  3. TEICOPLANIN [Suspect]
     Indication: PNEUMONIA
     Route: 065
     Dates: start: 20110411, end: 20110413
  4. ALBUTEROL [Concomitant]
     Route: 065
     Dates: start: 20110412
  5. SIMVASTATIN [Concomitant]
     Route: 065
  6. LEVOFLOXACIN [Suspect]
     Indication: PNEUMONIA
     Route: 065
     Dates: start: 20110411, end: 20110413
  7. IPRATROPIUM BROMIDE [Concomitant]
     Route: 065
     Dates: start: 20110412

REACTIONS (3)
  - CARDIAC ARREST [None]
  - ACUTE HEPATIC FAILURE [None]
  - RENAL FAILURE ACUTE [None]
